FAERS Safety Report 13188975 (Version 1)
Quarter: 2017Q1

REPORT INFORMATION
  Report Type: Spontaneous
  Country: US (occurrence: US)
  Receive Date: 20170206
  Receipt Date: 20170206
  Transmission Date: 20170428
  Serious: No
  Sender: FDA-Public Use
  Company Number: US-GLAXOSMITHKLINE-US2017015637

PATIENT
  Age: 61 Year
  Sex: Female

DRUGS (1)
  1. NUCALA [Suspect]
     Active Substance: MEPOLIZUMAB
     Indication: ASTHMA
     Dosage: UNK, CYC Q MONTH
     Dates: start: 201604, end: 201612

REACTIONS (6)
  - Fatigue [Recovered/Resolved]
  - Feeling abnormal [Unknown]
  - Wheezing [Unknown]
  - Drug ineffective [Unknown]
  - Lethargy [Unknown]
  - Asthma [Unknown]

NARRATIVE: CASE EVENT DATE: 201606
